FAERS Safety Report 9710640 (Version 1)
Quarter: 2013Q4

REPORT INFORMATION
  Report Type: Spontaneous
  Country: US (occurrence: US)
  Receive Date: 20131126
  Receipt Date: 20131126
  Transmission Date: 20140711
  Serious: No
  Sender: FDA-Public Use
  Company Number: US-BRISTOL-MYERS SQUIBB COMPANY-19000884

PATIENT
  Age: 66 Year
  Sex: Male
  Weight: 101.58 kg

DRUGS (3)
  1. BYDUREON [Suspect]
     Dosage: NO OF DOSES-6
  2. METFORMIN [Concomitant]
  3. GLIMEPIRIDE [Concomitant]

REACTIONS (3)
  - Injection site nodule [Unknown]
  - Decreased appetite [Unknown]
  - Weight decreased [Unknown]
